FAERS Safety Report 23307019 (Version 1)
Quarter: 2023Q4

REPORT INFORMATION
  Report Type: Spontaneous
  Country: US (occurrence: US)
  Receive Date: 20231218
  Receipt Date: 20231218
  Transmission Date: 20240110
  Serious: No
  Sender: FDA-Public Use
  Company Number: US-RECKITT BENCKISER HEALTHCARE INT LIMITED-RB-087189-2023

PATIENT
  Sex: Male

DRUGS (3)
  1. DELSYM NO MESS VAPOR ROLL ON [Suspect]
     Active Substance: CAMPHOR (NATURAL)\EUCALYPTUS OIL\MENTHOL
     Indication: Sinusitis
     Dosage: UNKNOWN
     Route: 050
  2. DELSYM NO MESS VAPOR ROLL ON [Suspect]
     Active Substance: CAMPHOR (NATURAL)\EUCALYPTUS OIL\MENTHOL
     Indication: Cough
  3. DELSYM NO MESS VAPOR ROLL ON [Suspect]
     Active Substance: CAMPHOR (NATURAL)\EUCALYPTUS OIL\MENTHOL
     Indication: Nasopharyngitis

REACTIONS (2)
  - Product use in unapproved indication [Unknown]
  - Product complaint [Unknown]
